FAERS Safety Report 6226106-2 (Version None)
Quarter: 2009Q2

REPORT INFORMATION
  Report Type: 
  Country: None (occurrence: None)
  Receive Date: 20090612
  Receipt Date: 20090508
  Transmission Date: 20091009
  Serious: No
  Sender: FDA-Public Use
  Company Number: US-ABBOTT-09P-163-0572263-00

PATIENT
  Sex: Female
  Weight: 62.198 kg

DRUGS (6)
  1. HUMIRA [Suspect]
     Indication: ANKYLOSING SPONDYLITIS
     Dates: start: 20090330, end: 20090330
  2. HUMIRA [Suspect]
     Dates: start: 20090428
  3. OTC GERD MEDICATION [Concomitant]
     Indication: DRUG USE FOR UNKNOWN INDICATION
  4. PHRENILIN [Concomitant]
     Indication: HEADACHE
     Dates: start: 20090428
  5. BLOOD PRESSURE MEDICATION [Concomitant]
  6. IBUPROFEN [Concomitant]
     Indication: DRUG USE FOR UNKNOWN INDICATION

REACTIONS (4)
  - BONE PAIN [None]
  - FATIGUE [None]
  - HEADACHE [None]
  - NECK PAIN [None]
